FAERS Safety Report 5991108-8 (Version None)
Quarter: 2008Q4

REPORT INFORMATION
  Report Type: 
  Country: None (occurrence: None)
  Receive Date: 20081211
  Receipt Date: 20081204
  Transmission Date: 20090506
  Serious: Yes (Other)
  Sender: FDA-Public Use
  Company Number: US-JNJFOC-20081201873

PATIENT
  Age: 3 Year
  Sex: Male
  Weight: 13.61 kg

DRUGS (2)
  1. CHILDRENS TYLENOL PLUS FLU BUBBLEGUM [Suspect]
     Indication: NASOPHARYNGITIS
     Route: 048
  2. CHILDRENS TYLENOL PLUS FLU BUBBLEGUM [Suspect]
     Indication: PYREXIA
     Route: 048

REACTIONS (2)
  - CONVULSION [None]
  - WRONG DRUG ADMINISTERED [None]
